FAERS Safety Report 8349849-3 (Version None)
Quarter: 2012Q2

REPORT INFORMATION
  Report Type: 
  Country: None (occurrence: None)
  Receive Date: 20120510
  Receipt Date: 20120506
  Transmission Date: 20120825
  Serious: Yes (Other)
  Sender: FDA-Public Use
  Company Number: PL-PFIZER INC-2012110750

PATIENT
  Age: 24 Year
  Sex: Female

DRUGS (3)
  1. CYCLOPHOSPHAMIDE [Suspect]
     Indication: DESMOPLASTIC SMALL ROUND CELL TUMOUR
  2. DOXORUBICIN HYDROCHLORIDE [Suspect]
     Indication: DESMOPLASTIC SMALL ROUND CELL TUMOUR
  3. VINCRISTINE SULFATE [Suspect]
     Indication: DESMOPLASTIC SMALL ROUND CELL TUMOUR

REACTIONS (1)
  - PANCYTOPENIA [None]
